FAERS Safety Report 6421707-0 (Version None)
Quarter: 2009Q4

REPORT INFORMATION
  Report Type: 
  Country: None (occurrence: None)
  Receive Date: 20091029
  Receipt Date: 20091029
  Transmission Date: 20100525
  Serious: Yes (Other)
  Sender: FDA-Public Use
  Company Number: None

PATIENT
  Sex: Female
  Weight: 71.6683 kg

DRUGS (8)
  1. BUPROPION HCL [Suspect]
     Dosage: 200 MG AM 100 MG DAILY PM ORAL
     Route: 048
     Dates: start: 20090415
  2. BUPROPION HCL [Suspect]
     Dosage: 200 MG AM 100 MG DAILY PM ORAL
     Route: 048
     Dates: start: 20091006
  3. MEDROXYPROGESTERONE [Concomitant]
  4. IBUPROFEN [Concomitant]
  5. ESTRADIOL [Concomitant]
  6. ZOLPIDEM [Concomitant]
  7. AMPHETAMINE SALT [Concomitant]
  8. PERIOGARD WASH [Concomitant]

REACTIONS (9)
  - ACTIVITIES OF DAILY LIVING IMPAIRED [None]
  - ARTHRALGIA [None]
  - CONDITION AGGRAVATED [None]
  - CONSTIPATION [None]
  - FLUSHING [None]
  - MYALGIA [None]
  - PRODUCT SUBSTITUTION ISSUE [None]
  - TINNITUS [None]
  - VISUAL IMPAIRMENT [None]
